FAERS Safety Report 8918411 (Version 1)
Quarter: 2012Q4

REPORT INFORMATION
  Report Type: 
  Country: US (occurrence: US)
  Receive Date: 20121120
  Receipt Date: 20121120
  Transmission Date: 20130627
  Serious: No
  Sender: FDA-Public Use
  Company Number: US-ASTRAZENECA-2012SE17402

PATIENT
  Age: 74 Year
  Sex: Male
  Weight: 95.7 kg

DRUGS (13)
  1. NEXIUM [Suspect]
     Route: 048
  2. ZESTRIL [Suspect]
     Route: 048
  3. CRESTOR [Suspect]
     Route: 048
  4. PRAVACHOL [Concomitant]
  5. LIPITOR [Concomitant]
  6. ACTOS [Concomitant]
  7. PENNSAID [Concomitant]
  8. COREG [Concomitant]
  9. GLUCOTROX XL [Concomitant]
  10. LASIX [Concomitant]
  11. FLONASE [Concomitant]
  12. NORVASC [Concomitant]
  13. ONE TOUCH ULTRA SYSTEM KIT [Concomitant]

REACTIONS (1)
  - Pain in extremity [Recovered/Resolved]
